FAERS Safety Report 23485321 (Version 2)
Quarter: 2024Q4

REPORT INFORMATION
  Report Type: Spontaneous
  Country: US (occurrence: US)
  Receive Date: 20240206
  Receipt Date: 20241004
  Transmission Date: 20250114
  Serious: No
  Sender: SANOFI AVENTIS
  Company Number: US-SA-SAC20240129000628

PATIENT
  Age: 23 Year
  Sex: Male

DRUGS (4)
  1. ELOCTATE [Suspect]
     Active Substance: EFMOROCTOCOG ALFA
     Dosage: 6136 U(+/-10%), BIW FOR PROPHYLACTICALLY
     Route: 058
  2. ELOCTATE [Suspect]
     Active Substance: EFMOROCTOCOG ALFA
     Dosage: 6136 U(+/-10%), BIW FOR PROPHYLACTICALLY
     Route: 058
  3. ELOCTATE [Suspect]
     Active Substance: EFMOROCTOCOG ALFA
     Dosage: 6100 U
  4. ELOCTATE [Suspect]
     Active Substance: EFMOROCTOCOG ALFA
     Dosage: 6100 U

REACTIONS (2)
  - Musculoskeletal stiffness [Unknown]
  - Contusion [Unknown]

NARRATIVE: CASE EVENT DATE: 20240901
